FAERS Safety Report 4668837-1 (Version None)
Quarter: 2005Q2

REPORT INFORMATION
  Report Type: 
  Country: None (occurrence: None)
  Receive Date: 20050523
  Receipt Date: 20050222
  Transmission Date: 20051028
  Serious: Yes (Hospitalization)
  Sender: FDA-Public Use
  Company Number: US-BOEHRINGER INGELHEIM PHARMMACEUTICALS, INC.-2005-BP-02862BP

PATIENT
  Age: 48 Year
  Sex: Male

DRUGS (3)
  1. MOBIC [Suspect]
     Indication: OSTEOARTHRITIS
     Route: 048
     Dates: start: 20050203, end: 20050209
  2. ZETIA [Concomitant]
  3. AMBIEN [Concomitant]
     Dosage: AS NEEDED

REACTIONS (2)
  - ABDOMINAL PAIN UPPER [None]
  - APPENDICITIS PERFORATED [None]
